FAERS Safety Report 6086622-3 (Version None)
Quarter: 2009Q1

REPORT INFORMATION
  Report Type: 
  Country: None (occurrence: None)
  Receive Date: 20090223
  Receipt Date: 20090211
  Transmission Date: 20090719
  Serious: Yes (Disabling)
  Sender: FDA-Public Use
  Company Number: BR-PFIZER INC-2009169895

PATIENT

DRUGS (3)
  1. LIPITOR [Suspect]
     Indication: BLOOD TRIGLYCERIDES ABNORMAL
     Dosage: 10 MG, 1X/DAY
     Route: 048
     Dates: start: 20090204
  2. SELOZOK [Concomitant]
     Dosage: UNK
     Dates: start: 20060101
  3. NATRILIX - SLOW RELEASE [Concomitant]
     Dosage: UNK
     Dates: start: 20060101

REACTIONS (3)
  - BACK PAIN [None]
  - MYALGIA [None]
  - SPINAL DISORDER [None]
